FAERS Safety Report 6186524-8 (Version None)
Quarter: 2009Q2

REPORT INFORMATION
  Report Type: 
  Country: None (occurrence: None)
  Receive Date: 20090512
  Receipt Date: 20090504
  Transmission Date: 20091009
  Serious: Yes (Disabling)
  Sender: FDA-Public Use
  Company Number: CH-WYE-G03621809

PATIENT
  Sex: Male

DRUGS (3)
  1. EFFEXOR [Suspect]
     Dates: start: 20050101, end: 20050101
  2. EFFEXOR [Suspect]
     Dates: start: 20050101, end: 20080101
  3. EFFEXOR [Suspect]
     Dosage: SLOWLY TAPERING OFF
     Dates: start: 20080101, end: 20090101

REACTIONS (15)
  - BURNING SENSATION [None]
  - DIZZINESS [None]
  - DRUG EFFECT INCREASED [None]
  - DRUG WITHDRAWAL SYNDROME [None]
  - EYE IRRITATION [None]
  - EYE PAIN [None]
  - FATIGUE [None]
  - FEELING ABNORMAL [None]
  - HEADACHE [None]
  - INFLUENZA LIKE ILLNESS [None]
  - MYALGIA [None]
  - PARAESTHESIA [None]
  - PYREXIA [None]
  - SOMNOLENCE [None]
  - VISUAL ACUITY REDUCED [None]
